FAERS Safety Report 24906176 (Version 1)
Quarter: 2025Q1

REPORT INFORMATION
  Report Type: Spontaneous
  Country: CN (occurrence: CN)
  Receive Date: 20250130
  Receipt Date: 20250130
  Transmission Date: 20250408
  Serious: Yes (Hospitalization)
  Sender: ROCHE
  Company Number: CN-BoehringerIngelheim-2025-BI-004740

PATIENT
  Age: 72 Year
  Sex: Male
  Weight: 43 kg

DRUGS (2)
  1. ALTEPLASE [Suspect]
     Active Substance: ALTEPLASE
     Indication: Thrombolysis
     Route: 040
     Dates: start: 20250119, end: 20250119
  2. ALTEPLASE [Suspect]
     Active Substance: ALTEPLASE
     Route: 040
     Dates: start: 20250119, end: 20250119

REACTIONS (3)
  - Basal ganglia haemorrhage [Unknown]
  - Muscular weakness [Unknown]
  - Subarachnoid haemorrhage [Unknown]

NARRATIVE: CASE EVENT DATE: 20250120
